FAERS Safety Report 6733035-4 (Version None)
Quarter: 2010Q2

REPORT INFORMATION
  Report Type: 
  Country: None (occurrence: None)
  Receive Date: 20100517
  Receipt Date: 20100505
  Transmission Date: 20101027
  Serious: Yes (Hospitalization)
  Sender: FDA-Public Use
  Company Number: 044-20484-08110875

PATIENT
  Age: 31 Year
  Sex: Female
  Weight: 60 kg

DRUGS (6)
  1. INNOHEP [Suspect]
     Indication: THROMBOSIS PROPHYLAXIS
     Dosage: 4500 IU (4500 IU, 1 IN 1 D)
     Dates: start: 20041227, end: 20051028
  2. VITAMIN SUPPLEMENT (VITAMINS /9003601/) [Concomitant]
  3. IRON [Concomitant]
  4. ACETAMINOPHEN [Concomitant]
  5. OXYTOCIN [Concomitant]
  6. LABETALOL HCL [Concomitant]

REACTIONS (4)
  - DRUG EXPOSURE DURING PREGNANCY [None]
  - POSTPARTUM HAEMORRHAGE [None]
  - RETAINED PLACENTA OR MEMBRANES [None]
  - VAGINAL HAEMORRHAGE [None]
